FAERS Safety Report 18436419 (Version 1)
Quarter: 2020Q4

REPORT INFORMATION
  Report Type: Spontaneous
  Country: IN (occurrence: IN)
  Receive Date: 20201028
  Receipt Date: 20201028
  Transmission Date: 20210114
  Serious: Yes (Other)
  Sender: FDA-Public Use
  Company Number: IN-PFIZER INC-2020282671

PATIENT
  Age: 44 Year
  Sex: Male
  Weight: 116 kg

DRUGS (1)
  1. SUTENT [Suspect]
     Active Substance: SUNITINIB MALATE
     Indication: METASTATIC RENAL CELL CARCINOMA
     Dosage: 50 MG, ONCE A DAY, TWO WEEKS ON AND 1 WEEK OFF
     Route: 048
     Dates: start: 20200716, end: 2020

REACTIONS (4)
  - Gastric ulcer [Unknown]
  - Fluid retention [Unknown]
  - Mouth ulceration [Unknown]
  - Skin ulcer [Unknown]

NARRATIVE: CASE EVENT DATE: 2020
